FAERS Safety Report 18904609 (Version 1)
Quarter: 2021Q1

REPORT INFORMATION
  Report Type: Spontaneous
  Country: US (occurrence: US)
  Receive Date: 20210217
  Receipt Date: 20210217
  Transmission Date: 20210420
  Serious: No
  Sender: FDA-Public Use
  Company Number: US-009507513-2102USA005528

PATIENT
  Sex: Female

DRUGS (19)
  1. CLONIDINE HYDROCHLORIDE. [Concomitant]
     Active Substance: CLONIDINE HYDROCHLORIDE
     Indication: HYPERTENSION
     Dosage: 0.1 MILLIGRAM, 1 TABLET, PRN
     Route: 048
     Dates: start: 2017
  2. LEVOTHYROXINE SODIUM. [Concomitant]
     Active Substance: LEVOTHYROXINE SODIUM
     Indication: HYPERTHYROIDISM
     Dosage: 112 MILLIGRAM, 1 TABLET, QD
     Route: 048
     Dates: start: 2017
  3. PRINIVIL [Concomitant]
     Active Substance: LISINOPRIL
     Indication: ATRIAL FIBRILLATION
     Dosage: 10 MILLIGRAM, 1 TABLET, QD
     Route: 048
     Dates: start: 2017, end: 2020
  4. ACETAMINOPHEN (+) OXYCODONE HYDROCHLORIDE [Concomitant]
     Active Substance: ACETAMINOPHEN\OXYCODONE HYDROCHLORIDE
     Indication: PAIN
     Dosage: 10?325 MG, 1 TABLET EVERY 6 HOURS
     Route: 048
     Dates: start: 2017
  5. SUCRALFATE. [Concomitant]
     Active Substance: SUCRALFATE
     Indication: IRRITABLE BOWEL SYNDROME
     Dosage: 1 MILLIGRAM, 1 TABLET, QID
     Route: 048
     Dates: start: 2017
  6. TRAZODONE HYDROCHLORIDE. [Concomitant]
     Active Substance: TRAZODONE HYDROCHLORIDE
     Indication: DEPRESSION
     Dosage: 50 MILLIGRAM, 1 TABLET, QD
     Route: 048
     Dates: start: 2016, end: 2020
  7. OCUVITE [Concomitant]
     Active Substance: VITAMINS
     Indication: MACULAR DEGENERATION
     Dosage: 1 DROP DAILY IN EACH EYE
     Dates: start: 2017, end: 2020
  8. SYSTANE BALANCE [Concomitant]
     Active Substance: PROPYLENE GLYCOL
     Indication: MACULAR DEGENERATION
     Dosage: 1 DROP IN EACH EYE 5 TIMES A DAY
     Dates: start: 2017
  9. FOSAMAX [Suspect]
     Active Substance: ALENDRONATE SODIUM
     Indication: DYSPHAGIA
     Dosage: 70 MILLIGRAM, 1 TABLET, QD
     Route: 048
     Dates: start: 2018, end: 2020
  10. CRESTOR [Concomitant]
     Active Substance: ROSUVASTATIN CALCIUM
     Indication: BLOOD CHOLESTEROL INCREASED
     Dosage: 0.5 DOSAGE FORM, HS
     Route: 048
     Dates: start: 2011
  11. IPRATROPIUM BROMIDE. [Concomitant]
     Active Substance: IPRATROPIUM BROMIDE
     Indication: HYPERSENSITIVITY
     Dosage: 3 SPRAYS IN EACH NOSTRIL 3 TIMES A DAY
     Route: 045
     Dates: start: 2017, end: 2018
  12. TELMISARTAN. [Concomitant]
     Active Substance: TELMISARTAN
     Indication: HYPERTENSION
     Dosage: 80 MILLIGRAM, 1 TABLET, QD
     Dates: start: 2017
  13. ROPINIROLE HYDROCHLORIDE. [Concomitant]
     Active Substance: ROPINIROLE HYDROCHLORIDE
     Indication: RESTLESS LEGS SYNDROME
     Dosage: 2 TABLETS DAILY
     Route: 048
     Dates: start: 2017
  14. XARELTO [Concomitant]
     Active Substance: RIVAROXABAN
     Indication: ANTICOAGULANT THERAPY
     Dosage: 20 MILLIGRAM, 1 TABLET, QD
     Route: 048
     Dates: start: 2016
  15. METOPROLOL SUCCINATE. [Concomitant]
     Active Substance: METOPROLOL SUCCINATE
     Indication: ATRIAL FIBRILLATION
     Dosage: 20 MILLIGRAM, 1 TABLET, QD
     Route: 048
     Dates: start: 2017
  16. PRISTIQ EXTENDED?RELEASE [Concomitant]
     Active Substance: DESVENLAFAXINE SUCCINATE
     Indication: DEPRESSION
     Dosage: 100 MILLIGRAM, 1 TABLET AT BEDTIME
     Route: 048
     Dates: start: 2017
  17. MECLIZINE [Concomitant]
     Active Substance: MECLIZINE HYDROCHLORIDE
     Indication: DIZZINESS
     Dosage: 25 MILLIGRAM, 1 TABLET AS NEEDED
     Route: 048
     Dates: start: 2017
  18. FENOFIBRATE. [Concomitant]
     Active Substance: FENOFIBRATE
     Indication: BLOOD CHOLESTEROL INCREASED
     Dosage: 160 MILLIGRAM, 1 TABLET, QD
     Route: 048
     Dates: start: 2017
  19. SYMPROIC [Concomitant]
     Active Substance: NALDEMEDINE
     Indication: CONSTIPATION
     Dosage: 2 MILLIGRAM, 1 TABLET, QD
     Route: 048
     Dates: start: 2017

REACTIONS (2)
  - Product use in unapproved indication [Unknown]
  - Overdose [Unknown]

NARRATIVE: CASE EVENT DATE: 2018
